FAERS Safety Report 5760145-0 (Version None)
Quarter: 2008Q2

REPORT INFORMATION
  Report Type: 
  Country: None (occurrence: None)
  Receive Date: 20080605
  Receipt Date: 20080527
  Transmission Date: 20081010
  Serious: No
  Sender: FDA-Public Use
  Company Number: US-BOEHRINGER INGELHEIM GMBH, GERMANY-2008-BP-08239BP

PATIENT
  Age: 72 Year
  Sex: Male

DRUGS (6)
  1. COMBIVENT [Suspect]
     Indication: PNEUMONIA
     Route: 055
     Dates: start: 20080525
  2. BACTRIM [Concomitant]
  3. CARTIA XT [Concomitant]
  4. COUMADIN [Concomitant]
  5. LOPRESSOR [Concomitant]
  6. LEVAQUIN [Concomitant]

REACTIONS (2)
  - DRY MOUTH [None]
  - DYSPHONIA [None]
